FAERS Safety Report 7114624-4 (Version None)
Quarter: 2010Q4

REPORT INFORMATION
  Report Type: 
  Country: None (occurrence: None)
  Receive Date: 20101121
  Receipt Date: 20101108
  Transmission Date: 20110411
  Serious: Yes (Hospitalization, Other)
  Sender: FDA-Public Use
  Company Number: US-ELI_LILLY_AND_COMPANY-US201011003179

PATIENT
  Age: 43 Year
  Sex: Male
  Weight: 97 kg

DRUGS (6)
  1. CYMBALTA [Suspect]
     Indication: DEPRESSION
     Dosage: 60 MG, DAILY (1/D)
     Dates: start: 20090801
  2. EMTRICITABINE W/TENOFOVIR [Concomitant]
     Indication: ANTIRETROVIRAL THERAPY
     Dosage: 1 D/F, DAILY (1/D)
  3. RITONAVIR [Concomitant]
     Indication: ANTIRETROVIRAL THERAPY
     Dosage: 100 MG, DAILY (1/D)
  4. DARUNAVIR [Concomitant]
     Indication: ANTIRETROVIRAL THERAPY
     Dosage: 800 MG, DAILY (1/D)
  5. ARIPIPRAZOLE [Concomitant]
     Indication: DEPRESSION
     Dosage: 50 MG, DAILY (1/D)
     Dates: start: 20090801
  6. BUSPIRONE HCL [Concomitant]
     Dosage: 60 MG, DAILY (1/D)
     Dates: start: 20090801

REACTIONS (6)
  - DRUG INTERACTION [None]
  - DRUG TOXICITY [None]
  - HEADACHE [None]
  - MUSCULOSKELETAL STIFFNESS [None]
  - TACHYCARDIA [None]
  - VISION BLURRED [None]
